FAERS Safety Report 4505807-8 (Version None)
Quarter: 2004Q4

REPORT INFORMATION
  Report Type: 
  Country: None (occurrence: None)
  Receive Date: 20041119
  Receipt Date: 20041110
  Transmission Date: 20050328
  Serious: Yes (Life-Threatening)
  Sender: FDA-Public Use
  Company Number: GB-JNJFOC-20041102750

PATIENT
  Age: 86 Year
  Sex: Male

DRUGS (4)
  1. TRAMADOL HCL [Suspect]
     Indication: ABDOMINAL PAIN
     Route: 042
  2. SALBUTAMOL [Concomitant]
     Indication: CHRONIC OBSTRUCTIVE AIRWAYS DISEASE
     Route: 055
  3. SPIRONOLACTONE [Concomitant]
     Indication: BLOOD PRESSURE ABNORMAL
     Route: 049
  4. FENTANYL [Concomitant]
     Indication: ANALGESIC EFFECT
     Route: 003

REACTIONS (2)
  - HEART RATE IRREGULAR [None]
  - TONIC CONVULSION [None]
